FAERS Safety Report 7785475-2 (Version None)
Quarter: 2011Q3

REPORT INFORMATION
  Report Type: 
  Country: None (occurrence: None)
  Receive Date: 20110929
  Receipt Date: 20110929
  Transmission Date: 20111222
  Serious: Yes (Hospitalization)
  Sender: FDA-Public Use
  Company Number: PHHO2011DE01223

PATIENT
  Sex: Male
  Weight: 18 kg

DRUGS (5)
  1. FOLSAN [Concomitant]
  2. METHOTREXATE [Concomitant]
  3. NAPROXEN [Concomitant]
  4. ILARIS [Suspect]
     Indication: JUVENILE ARTHRITIS
     Dosage: 72 MG
     Route: 058
     Dates: start: 20101110, end: 20110107
  5. PLACEBO [Suspect]
     Indication: JUVENILE ARTHRITIS
     Dosage: UNK

REACTIONS (3)
  - PYREXIA [None]
  - LYMPH NODE ABSCESS [None]
  - LYMPHADENITIS [None]
